FAERS Safety Report 7596728-5 (Version None)
Quarter: 2011Q3

REPORT INFORMATION
  Report Type: 
  Country: None (occurrence: None)
  Receive Date: 20110708
  Receipt Date: 20110704
  Transmission Date: 20111222
  Serious: No
  Sender: FDA-Public Use
  Company Number: US-PFIZER INC-2011146978

PATIENT
  Sex: Female

DRUGS (4)
  1. VENLAFAXINE HCL [Suspect]
     Dosage: 75 MG
  2. EFFEXOR XR [Suspect]
     Dosage: 75 MG
  3. EFFEXOR XR [Suspect]
     Dosage: 37.5 MG
  4. VENLAFAXINE HCL [Suspect]
     Dosage: 37.5 MG

REACTIONS (2)
  - PARAESTHESIA [None]
  - HEADACHE [None]
